FAERS Safety Report 23628848 (Version 4)
Quarter: 2024Q2

REPORT INFORMATION
  Report Type: Spontaneous
  Country: US (occurrence: US)
  Receive Date: 20240313
  Receipt Date: 20240409
  Transmission Date: 20240716
  Serious: No
  Sender: FDA-Public Use
  Company Number: US-Calliditas-2024CAL00379

PATIENT
  Age: 60 Year
  Sex: Male
  Weight: 134 kg

DRUGS (1)
  1. TARPEYO [Suspect]
     Active Substance: BUDESONIDE
     Indication: IgA nephropathy
     Dosage: 16 MG (4 MG CAPSULE) ONCE DAILY
     Route: 048
     Dates: start: 20240223

REACTIONS (5)
  - Vision blurred [Recovered/Resolved]
  - Swelling [Not Recovered/Not Resolved]
  - Weight increased [Not Recovered/Not Resolved]
  - Peripheral swelling [Unknown]
  - Skin tightness [Unknown]

NARRATIVE: CASE EVENT DATE: 20240304
